FAERS Safety Report 8524629-4 (Version None)
Quarter: 2012Q3

REPORT INFORMATION
  Report Type: 
  Country: None (occurrence: None)
  Receive Date: 20120720
  Receipt Date: 20120706
  Transmission Date: 20120928
  Serious: Yes (Hospitalization)
  Sender: FDA-Public Use
  Company Number: US-ROCHE-1085964

PATIENT
  Sex: Female
  Weight: 82.174 kg

DRUGS (13)
  1. DOCETAXEL [Suspect]
     Indication: BREAST CANCER
     Dosage: DATE OF LAST DOSE PRIOR TO SAE: 25/JUN/2012
     Dates: start: 20120423
  2. KEPPRA [Concomitant]
     Dates: start: 20120216
  3. ATIVAN [Concomitant]
     Dates: start: 20120216
  4. VALIUM [Concomitant]
     Dates: start: 20120320
  5. CETRIZINE (UNK INGREDIENTS) [Concomitant]
     Dosage: 1-2 TABLETS
     Dates: start: 20120620
  6. PERCOCET [Concomitant]
     Dosage: 30/1950 MG
     Dates: start: 20120530
  7. DECADRON [Concomitant]
     Dates: start: 20120422
  8. NEULASTA [Concomitant]
     Dates: start: 20120515
  9. LOMOTIL [Concomitant]
     Dates: start: 20120514
  10. HERCEPTIN [Suspect]
     Indication: BREAST CANCER
     Dosage: LAST DOSE PRIOR TO SAE ON 25/JUN/2012
     Route: 042
     Dates: start: 20120423
  11. CARBOPLATIN [Suspect]
     Indication: BREAST CANCER
     Dosage: LAST DOPSE PRIOR TO SAE ON 25/JUN/2012
     Route: 042
     Dates: start: 20120423
  12. ZOFRAN [Concomitant]
     Dates: start: 20120514
  13. PERTUZUMAB [Suspect]
     Indication: BREAST CANCER
     Dosage: LAST DOSE PRIOR TO SAE ON 25/JUN/2012
     Route: 042
     Dates: start: 20120423

REACTIONS (1)
  - DEHYDRATION [None]
